FAERS Safety Report 23066237 (Version 1)
Quarter: 2023Q4

REPORT INFORMATION
  Report Type: Spontaneous
  Country: GB (occurrence: GB)
  Receive Date: 20231015
  Receipt Date: 20231015
  Transmission Date: 20240110
  Serious: Yes (Other)
  Sender: FDA-Public Use
  Company Number: GB-MHRA-MED-202310071036159900-CGKRY

PATIENT
  Age: 33 Year
  Sex: Female

DRUGS (1)
  1. TOPIRAMATE [Suspect]
     Active Substance: TOPIRAMATE
     Indication: Adverse drug reaction
     Dosage: 400 MILLIGRAM, ONCE A DAY,  AT NIGHT
     Route: 065
     Dates: start: 2007

REACTIONS (1)
  - Iridocyclitis [Not Recovered/Not Resolved]
